FAERS Safety Report 5060098-7 (Version None)
Quarter: 2006Q3

REPORT INFORMATION
  Report Type: 
  Country: None (occurrence: None)
  Receive Date: 20060719
  Receipt Date: 20060714
  Transmission Date: 20061208
  Serious: Yes (Hospitalization)
  Sender: FDA-Public Use
  Company Number: 2005P1000607

PATIENT
  Age: 71 Year
  Sex: Male
  Weight: 65 kg

DRUGS (13)
  1. RETEPLASE              (RETEPLASE) [Suspect]
     Dosage: IV
     Route: 042
     Dates: start: 20050930, end: 20050930
  2. REOPRO [Suspect]
     Indication: ACUTE MYOCARDIAL INFARCTION
     Dosage: IV
     Route: 042
     Dates: start: 20050930
  3. METOPROLOL TARTRATE [Concomitant]
  4. TRIMETAZIDINE [Concomitant]
  5. ASPIRIN [Concomitant]
  6. SIMVASTATIN [Concomitant]
  7. TICLOPIDINE [Concomitant]
  8. TRANDOLAPRIL [Concomitant]
  9. NIFUROXAZIDE [Concomitant]
  10. LACTOBACILLUS ACIDOPHILUS [Concomitant]
  11. PERINDOPRIL [Concomitant]
  12. RANITIDINE [Concomitant]
  13. METOPROLOL [Concomitant]

REACTIONS (9)
  - BLOOD GLUCOSE INCREASED [None]
  - CHEST PAIN [None]
  - CORONARY ARTERY STENOSIS [None]
  - DIZZINESS [None]
  - DYSPNOEA [None]
  - GASTROINTESTINAL DISORDER [None]
  - PNEUMONIA [None]
  - THROMBOSIS [None]
  - VENTRICULAR HYPERTROPHY [None]
